FAERS Safety Report 21316369 (Version 2)
Quarter: 2022Q4

REPORT INFORMATION
  Report Type: Report from Study
  Country: US (occurrence: US)
  Receive Date: 20220910
  Receipt Date: 20221003
  Transmission Date: 20230113
  Serious: Yes (Hospitalization, Other)
  Sender: FDA-Public Use
  Company Number: US-SA-SAC20220908000508

PATIENT
  Sex: Male

DRUGS (6)
  1. TERIFLUNOMIDE [Suspect]
     Active Substance: TERIFLUNOMIDE
     Indication: Multiple sclerosis
     Dosage: UNK UNK, QD
     Route: 048
     Dates: start: 20160606
  2. AMLODIPINE [Concomitant]
     Active Substance: AMLODIPINE BESYLATE
  3. VENLAFAXINE [Concomitant]
     Active Substance: VENLAFAXINE HYDROCHLORIDE
  4. GABAPENTIN [Concomitant]
     Active Substance: GABAPENTIN
  5. VIT D [VITAMIN D NOS] [Concomitant]
  6. VITAMIN B [Concomitant]
     Active Substance: VITAMIN B

REACTIONS (3)
  - Limb crushing injury [Recovered/Resolved]
  - Postoperative wound infection [Unknown]
  - Acute kidney injury [Unknown]

NARRATIVE: CASE EVENT DATE: 20170101
